FAERS Safety Report 7513277-0 (Version None)
Quarter: 2011Q2

REPORT INFORMATION
  Report Type: 
  Country: None (occurrence: None)
  Receive Date: 20110531
  Receipt Date: 20110523
  Transmission Date: 20111010
  Serious: Yes (Other)
  Sender: FDA-Public Use
  Company Number: BR-SANOFI-AVENTIS-2010SA015301

PATIENT
  Age: 54 Year
  Sex: Female
  Weight: 71 kg

DRUGS (8)
  1. LANTUS [Suspect]
     Route: 058
  2. LEVOTHYROXINE SODIUM [Concomitant]
     Indication: THYROID DISORDER
     Route: 048
  3. PROCRIT [Concomitant]
     Indication: ANAEMIA
     Route: 048
  4. PLAVIX [Concomitant]
     Route: 048
  5. NOVORAPID [Concomitant]
     Indication: TYPE 2 DIABETES MELLITUS
     Route: 058
  6. LANTUS [Suspect]
     Route: 058
     Dates: start: 20100101
  7. LANTUS [Suspect]
     Indication: TYPE 2 DIABETES MELLITUS
     Route: 058
  8. LANTUS [Suspect]
     Route: 058
     Dates: start: 20100101, end: 20100101

REACTIONS (13)
  - GLAUCOMA [None]
  - BLOOD CREATININE INCREASED [None]
  - DRUG INEFFECTIVE [None]
  - PRODUCT QUALITY ISSUE [None]
  - EYE HAEMORRHAGE [None]
  - BLOOD GLUCOSE INCREASED [None]
  - BLOOD UREA INCREASED [None]
  - RENAL DISORDER [None]
  - EYE SWELLING [None]
  - PNEUMONIA [None]
  - HYPOGLYCAEMIA [None]
  - HYPERGLYCAEMIA [None]
  - ANAEMIA [None]
